FAERS Safety Report 4508878-8 (Version None)
Quarter: 2004Q4

REPORT INFORMATION
  Report Type: 
  Country: None (occurrence: None)
  Receive Date: 20041123
  Receipt Date: 20010811
  Transmission Date: 20050328
  Serious: Yes (Other)
  Sender: FDA-Public Use
  Company Number: PHBS2001BR13505

PATIENT
  Age: 52 Year
  Sex: Female

DRUGS (1)
  1. STARLIX [Suspect]
     Dosage: 120 MG, TID
     Route: 048

REACTIONS (1)
  - HEPATITIS [None]
